FAERS Safety Report 5127886-X (Version None)
Quarter: 2006Q4

REPORT INFORMATION
  Report Type: 
  Country: None (occurrence: None)
  Receive Date: 20061016
  Receipt Date: 20061004
  Transmission Date: 20070319
  Serious: Yes (Life-Threatening, Hospitalization)
  Sender: FDA-Public Use
  Company Number: BE-AMGEN-UK195822

PATIENT
  Sex: Male

DRUGS (5)
  1. ARANESP [Suspect]
     Indication: DIALYSIS
     Route: 042
     Dates: start: 20060606, end: 20060704
  2. NEORECORMON [Suspect]
     Route: 042
     Dates: start: 20060713
  3. LINEZOLID [Suspect]
     Route: 065
  4. RIFADIN [Suspect]
     Route: 065
  5. MERONEM [Suspect]
     Route: 065

REACTIONS (2)
  - APLASIA PURE RED CELL [None]
  - SPONDYLITIS [None]
